FAERS Safety Report 8014100-0 (Version None)
Quarter: 2011Q4

REPORT INFORMATION
  Report Type: 
  Country: None (occurrence: None)
  Receive Date: 20111229
  Receipt Date: 20111220
  Transmission Date: 20120403
  Serious: Yes (Hospitalization)
  Sender: FDA-Public Use
  Company Number: SE-MILLENNIUM PHARMACEUTICALS, INC.-2011-06509

PATIENT

DRUGS (5)
  1. DIFLUCAN [Concomitant]
  2. BETAPRED [Concomitant]
     Dosage: 0.5 MG, UNK
  3. VELCADE [Suspect]
     Dosage: UNK
     Dates: start: 20111031
  4. ACYCLOVIR [Concomitant]
  5. VELCADE [Suspect]
     Indication: MULTIPLE MYELOMA
     Dosage: UNK
     Dates: start: 20111025

REACTIONS (1)
  - INTESTINAL GANGRENE [None]
